FAERS Safety Report 23582314 (Version 2)
Quarter: 2024Q2

REPORT INFORMATION
  Report Type: Spontaneous
  Country: US (occurrence: US)
  Receive Date: 20240229
  Receipt Date: 20240521
  Transmission Date: 20240716
  Serious: No
  Sender: FDA-Public Use
  Company Number: US-SA-SAC20240227001032

PATIENT
  Age: 41 Year
  Sex: Female

DRUGS (1)
  1. DUPIXENT [Suspect]
     Active Substance: DUPILUMAB
     Indication: Nasal polyps
     Dosage: 300 MG, QOW
     Route: 058
     Dates: start: 202401

REACTIONS (9)
  - Abdominal distension [Unknown]
  - Weight increased [Unknown]
  - Nasal congestion [Unknown]
  - Nasal obstruction [Unknown]
  - Oedema [Unknown]
  - Hypersensitivity [Not Recovered/Not Resolved]
  - Therapeutic product effect incomplete [Unknown]
  - Product prescribing error [Unknown]
  - Incorrect dose administered [Unknown]

NARRATIVE: CASE EVENT DATE: 20240101
